FAERS Safety Report 12407410 (Version 1)
Quarter: 2016Q2

REPORT INFORMATION
  Report Type: Report from Study
  Country: US (occurrence: US)
  Receive Date: 20160526
  Receipt Date: 20160526
  Transmission Date: 20160815
  Serious: No
  Sender: FDA-Public Use
  Company Number: GXBR2015US001444

PATIENT
  Age: 14 Year
  Sex: Male

DRUGS (1)
  1. OMNITROPE [Suspect]
     Active Substance: SOMATROPIN
     Indication: GROWTH HORMONE DEFICIENCY
     Dosage: 2.5 MG, QD
     Route: 058
     Dates: start: 2012

REACTIONS (9)
  - Blood creatinine increased [Unknown]
  - Blood glucose increased [Unknown]
  - Blood urea nitrogen/creatinine ratio increased [Unknown]
  - Concussion [Recovered/Resolved]
  - Blood urea increased [Unknown]
  - Facial bones fracture [Recovered/Resolved]
  - Eosinophil count increased [Unknown]
  - Nasal septum deviation [Recovered/Resolved]
  - Neutrophil count decreased [Unknown]

NARRATIVE: CASE EVENT DATE: 20131209
